FAERS Safety Report 9579967 (Version 1)
Quarter: 2013Q3

REPORT INFORMATION
  Report Type: Spontaneous
  Country: US (occurrence: None)
  Receive Date: 20130916
  Receipt Date: 20130916
  Transmission Date: 20140515
  Serious: Yes (Other)
  Sender: FDA-Public Use
  Company Number: JPI-P-025780

PATIENT
  Sex: Female

DRUGS (1)
  1. XYREM (500 MILLIGRAM/MILLILITERS, SOLUTION) (SODIUM OXYBATE) [Suspect]
     Route: 048
     Dates: start: 20120924, end: 2012

REACTIONS (18)
  - Syncope [None]
  - Dry mouth [None]
  - Thirst [None]
  - Screaming [None]
  - Moaning [None]
  - Abnormal behaviour [None]
  - Acne [None]
  - Scab [None]
  - Haemorrhage [None]
  - Dry skin [None]
  - Impaired healing [None]
  - Nausea [None]
  - Insomnia [None]
  - Head injury [None]
  - Crying [None]
  - Feeling abnormal [None]
  - Dizziness [None]
  - Fall [None]
